FAERS Safety Report 8796647 (Version 1)
Quarter: 2012Q4

REPORT INFORMATION
  Report Type: 
  Country: US (occurrence: US)
  Receive Date: 20120920
  Receipt Date: 20120920
  Transmission Date: 20130627
  Serious: Yes (Hospitalization)
  Sender: FDA-Public Use
  Company Number: US-BIOGENIDEC-2012BI037576

PATIENT
  Age: 60 Year
  Sex: Female

DRUGS (1)
  1. AVONEX [Suspect]
     Indication: MULTIPLE SCLEROSIS
     Route: 030
     Dates: start: 19991001

REACTIONS (5)
  - Hip fracture [Recovered/Resolved]
  - Fall [Recovered/Resolved]
  - Peripheral arterial occlusive disease [Recovered/Resolved]
  - Coronary artery occlusion [Unknown]
  - Dry mouth [Not Recovered/Not Resolved]
